FAERS Safety Report 5624885-6 (Version None)
Quarter: 2008Q1

REPORT INFORMATION
  Report Type: 
  Country: None (occurrence: None)
  Receive Date: 20080213
  Receipt Date: 20080205
  Transmission Date: 20080703
  Serious: Yes (Hospitalization)
  Sender: FDA-Public Use
  Company Number: DE-ASTRAZENECA-2008PK00182

PATIENT
  Sex: Female

DRUGS (1)
  1. SCANDICAIN [Suspect]
     Indication: MERALGIA PARAESTHETICA

REACTIONS (5)
  - CONTUSION [None]
  - FALL [None]
  - PAIN IN EXTREMITY [None]
  - PARAESTHESIA [None]
  - UPPER LIMB FRACTURE [None]
